FAERS Safety Report 4906153-0 (Version None)
Quarter: 2006Q1

REPORT INFORMATION
  Report Type: 
  Country: None (occurrence: None)
  Receive Date: 20060207
  Receipt Date: 20060207
  Transmission Date: 20060701
  Serious: Yes (Hospitalization)
  Sender: FDA-Public Use
  Company Number: None

PATIENT
  Age: 60 Year
  Sex: Male
  Weight: 85.2762 kg

DRUGS (20)
  1. TRAMADOL [Suspect]
     Indication: PAIN
     Dosage: 50 MG Q6H PRM
     Dates: start: 20051004, end: 20051103
  2. NICOTINE [Concomitant]
  3. CHLORPHENIRAMINE MALEATE [Concomitant]
  4. CLOPIDOGREL BISULFATE [Concomitant]
  5. ASPIRIN [Concomitant]
  6. TRAMADOL HCL [Concomitant]
  7. AMITRIPTYLINE HCL [Concomitant]
  8. BUPROPION HCL [Concomitant]
  9. METOPROLOL TARTRATE [Concomitant]
  10. TERAZOSIN HCL [Concomitant]
  11. ISOSORBIDE DINITRATE [Concomitant]
  12. NITROGLYCERIN [Concomitant]
  13. HYDRALAZINE HCL [Concomitant]
  14. ACCU-CHEK COMFORT CV [Concomitant]
  15. RANITIDINE HCL [Concomitant]
  16. GLIPIZIDE [Concomitant]
  17. SODIUM CHLORIDE [Concomitant]
  18. ALBUTEROL [Concomitant]
  19. IPRATROPIUM BROMIDE [Concomitant]
  20. NIACIN [Concomitant]

REACTIONS (2)
  - CONFUSIONAL STATE [None]
  - SYNCOPE [None]
